FAERS Safety Report 19968462 (Version 1)
Quarter: 2021Q4

REPORT INFORMATION
  Report Type: Spontaneous
  Country: US (occurrence: US)
  Receive Date: 20211018
  Receipt Date: 20211018
  Transmission Date: 20220303
  Serious: Yes (Hospitalization)
  Sender: FDA-Public Use
  Company Number: None

PATIENT
  Age: 78 Year
  Sex: Male

DRUGS (1)
  1. ABIRATERONE [Suspect]
     Active Substance: ABIRATERONE
     Dosage: ?          OTHER DOSE:250MD;
     Route: 048
     Dates: start: 202011

REACTIONS (2)
  - Hot flush [None]
  - Urinary tract infection [None]

NARRATIVE: CASE EVENT DATE: 20210701
